FAERS Safety Report 14032656 (Version 1)
Quarter: 2017Q4

REPORT INFORMATION
  Report Type: Spontaneous
  Country: US (occurrence: US)
  Receive Date: 20171002
  Receipt Date: 20171002
  Transmission Date: 20180321
  Serious: No
  Sender: FDA-Public Use
  Company Number: US-PFIZER INC-2017421702

PATIENT
  Age: 86 Year
  Sex: Female
  Weight: 54.42 kg

DRUGS (1)
  1. IBRANCE [Suspect]
     Active Substance: PALBOCICLIB
     Indication: BREAST CANCER METASTATIC
     Dosage: 125 MG, CYCLIC (Q 1-21 Q 28 DAYS)
     Route: 048
     Dates: start: 201708

REACTIONS (2)
  - Pain in extremity [Unknown]
  - Chills [Unknown]
